FAERS Safety Report 4698168-5 (Version None)
Quarter: 2005Q2

REPORT INFORMATION
  Report Type: 
  Country: None (occurrence: None)
  Receive Date: 20050623
  Receipt Date: 20050610
  Transmission Date: 20051028
  Serious: Yes (Other)
  Sender: FDA-Public Use
  Company Number: 2005JP001158

PATIENT
  Age: 54 Year
  Sex: Female

DRUGS (5)
  1. CEFAZOLIN [Suspect]
     Indication: ANAESTHESIA
     Dosage: 2G UNKNOWN
     Route: 042
  2. PROPOFOL [Concomitant]
     Indication: INDUCTION OF ANAESTHESIA
     Route: 065
  3. VECURONIUM [Concomitant]
     Indication: INDUCTION OF ANAESTHESIA
     Dosage: 8MG UNKNOWN
     Route: 065
  4. MORPHINE [Concomitant]
     Indication: MAINTENANCE OF ANAESTHESIA
  5. UNSPECIFIED DRUG [Concomitant]

REACTIONS (10)
  - ANAPHYLACTIC REACTION [None]
  - BLOOD PRESSURE DECREASED [None]
  - ERYTHEMA [None]
  - HAEMORRHAGE [None]
  - HEADACHE [None]
  - HEART RATE INCREASED [None]
  - OPERATIVE HAEMORRHAGE [None]
  - PALPITATIONS [None]
  - PLATELET COUNT DECREASED [None]
  - THROMBOCYTOPENIA [None]
